FAERS Safety Report 10019643 (Version 3)
Quarter: 2014Q2

REPORT INFORMATION
  Report Type: Report from Study
  Country: UA (occurrence: UA)
  Receive Date: 20140318
  Receipt Date: 20140421
  Transmission Date: 20141212
  Serious: Yes (Death, Life-Threatening, Hospitalization)
  Sender: FDA-Public Use
  Company Number: UA-EISAI INC-E7389-04875-CLI-UA

PATIENT
  Age: 62 Year
  Sex: Male

DRUGS (14)
  1. ERIBULIN [Suspect]
     Indication: BLADDER CANCER
     Dosage: 2.0 MG
     Route: 041
     Dates: start: 20131220, end: 20140117
  2. ERIBULIN [Suspect]
     Dosage: DOSE REDUCED TO 1.4 MG
     Route: 041
     Dates: start: 20140205, end: 20140305
  3. CISPLATIN [Suspect]
     Indication: BLADDER CANCER
     Dosage: 140.0 MG
     Route: 041
     Dates: start: 20131220, end: 20140226
  4. GEMCITABINE [Suspect]
     Indication: BLADDER CANCER
     Dosage: 1000 MG/M2 (2000.0 MG)
     Route: 041
     Dates: start: 20131220, end: 20140117
  5. GEMCITABINE [Suspect]
     Dosage: DOSE REDUCED (1500 MG)
     Route: 041
     Dates: start: 20140205, end: 20140305
  6. FENOTEROL [Concomitant]
  7. THEOPHEDRIN [Concomitant]
  8. METHYLPREDNISOLONE [Concomitant]
     Indication: PROPHYLAXIS
  9. DEXAMETHASONUM [Concomitant]
     Indication: LEUKOPENIA
  10. DEXAMETHASONUM [Concomitant]
     Indication: PROPHYLAXIS OF NAUSEA AND VOMITING
  11. MELDONIUM [Concomitant]
     Indication: CARDIOVASCULAR EVENT PROPHYLAXIS
  12. ARGINNINE GLUTAMATE [Concomitant]
     Indication: PROPHYLAXIS
  13. MANNITOL [Concomitant]
     Indication: DRUG TOXICITY PROPHYLAXIS
  14. ONDANSETRON [Concomitant]
     Indication: PROPHYLAXIS OF NAUSEA AND VOMITING

REACTIONS (3)
  - Anaemia [Not Recovered/Not Resolved]
  - Diarrhoea [Not Recovered/Not Resolved]
  - Poisoning [Fatal]
